FAERS Safety Report 4278581-0 (Version None)
Quarter: 2004Q1

REPORT INFORMATION
  Report Type: 
  Country: None (occurrence: None)
  Receive Date: 20040122
  Receipt Date: 20040109
  Transmission Date: 20041129
  Serious: Yes (Hospitalization, Disabling)
  Sender: FDA-Public Use
  Company Number: 2004-00092

PATIENT
  Age: 72 Year
  Sex: Female
  Weight: 59 kg

DRUGS (1)
  1. PREDNISONE [Suspect]
     Indication: TEMPORAL ARTERITIS
     Dosage: 250 MG DAILY X 2 WKS, THEN TAPER, ORAL
     Route: 048
     Dates: start: 20031001

REACTIONS (23)
  - AGGRESSION [None]
  - ASTHENIA [None]
  - BIPOLAR DISORDER [None]
  - CUSHINGOID [None]
  - DEPRESSION [None]
  - DIFFICULTY IN WALKING [None]
  - ERYTHEMA [None]
  - HYPOTENSION [None]
  - INCONTINENCE [None]
  - MANIA [None]
  - MEDICATION ERROR [None]
  - MENTAL STATUS CHANGES [None]
  - OEDEMA PERIPHERAL [None]
  - PSYCHOMOTOR HYPERACTIVITY [None]
  - SEROTONIN SYNDROME [None]
  - SKIN DISORDER [None]
  - SKIN IRRITATION [None]
  - SKIN REACTION [None]
  - SWELLING FACE [None]
  - TREATMENT NONCOMPLIANCE [None]
  - TREMOR [None]
  - WEIGHT INCREASED [None]
  - WHEELCHAIR USER [None]
